FAERS Safety Report 4504949-0 (Version None)
Quarter: 2004Q4

REPORT INFORMATION
  Report Type: 
  Country: None (occurrence: None)
  Receive Date: 20041119
  Receipt Date: 20041110
  Transmission Date: 20050328
  Serious: Yes (Hospitalization)
  Sender: FDA-Public Use
  Company Number: ES-JNJFOC-20041103450

PATIENT
  Age: 32 Year
  Sex: Male
  Weight: 75 kg

DRUGS (5)
  1. REMICADE [Suspect]
     Indication: CROHN'S DISEASE
     Dosage: TOTAL DOSE OF 1.1 GRAM.
     Route: 042
  2. IMUREL [Concomitant]
     Indication: CROHN'S DISEASE
     Route: 049
  3. CLAVERSAL [Concomitant]
     Dosage: LONG TERM.
     Route: 049
  4. DACORTIN [Concomitant]
     Dosage: LONG TERM.
     Route: 049
  5. ISONIAZID [Concomitant]
     Indication: TUBERCULOSIS PROPHYLAXIS

REACTIONS (1)
  - LYMPH NODE TUBERCULOSIS [None]
